FAERS Safety Report 5477969-X (Version None)
Quarter: 2007Q4

REPORT INFORMATION
  Report Type: 
  Country: None (occurrence: None)
  Receive Date: 20071002
  Receipt Date: 20070914
  Transmission Date: 20080405
  Serious: Yes (Disabling)
  Sender: FDA-Public Use
  Company Number: 2007JP003715

PATIENT
  Age: 41 Year
  Sex: Male

DRUGS (18)
  1. PROGRAF [Suspect]
     Indication: CORD BLOOD TRANSPLANT THERAPY
     Dosage: 2 MG, IV DRIP
     Route: 041
     Dates: start: 20050528
  2. SIMVASTATIN [Concomitant]
  3. LORAZEPAM [Concomitant]
  4. ZYLORIC [Concomitant]
  5. JUSO (SODIUM BICARBONATE) [Concomitant]
  6. ZOVIRAX [Concomitant]
  7. DIFLUCAN [Concomitant]
  8. CIPROFLAXACIN [Concomitant]
  9. OMEPRAL [Concomitant]
  10. VANCOMYCIN HYDROCHLORIDE [Concomitant]
  11. ITRACONAZOLE [Concomitant]
  12. PREDNISONE [Concomitant]
  13. RABEPRAZOLE SODIUM [Concomitant]
  14. POLARAMINE            (CHLORPHENAMINE MALEATE) [Concomitant]
  15. MEROPEN         (MEROPENEM) [Concomitant]
  16. KYTRIL [Concomitant]
  17. HYDROCORTONE [Concomitant]
  18. ALKERAN [Concomitant]

REACTIONS (7)
  - ENCEPHALITIS HERPES [None]
  - HYPONATRAEMIA [None]
  - INSOMNIA [None]
  - MALNUTRITION [None]
  - PANCYTOPENIA [None]
  - PSEUDOMEMBRANOUS COLITIS [None]
  - TREATMENT NONCOMPLIANCE [None]
